FAERS Safety Report 8890288 (Version 2)
Quarter: 2014Q1

REPORT INFORMATION
  Report Type: Spontaneous
  Country: NO (occurrence: NO)
  Receive Date: 20121107
  Receipt Date: 20140318
  Transmission Date: 20141002
  Serious: Yes (Life-Threatening, Hospitalization, Other)
  Sender: FDA-Public Use
  Company Number: NO-PFIZER INC-2012274455

PATIENT
  Age: 8 Decade
  Sex: Male

DRUGS (2)
  1. GABAPENTIN [Suspect]
     Indication: CHEST PAIN
     Dosage: UNK
  2. METOPROLOL TARTRATE [Suspect]
     Indication: GENERAL PHYSICAL HEALTH DETERIORATION
     Dosage: UNK

REACTIONS (16)
  - Myasthenia gravis [Recovered/Resolved]
  - Myocardial infarction [Recovered/Resolved]
  - Haemorrhage [Recovered/Resolved]
  - Chronic obstructive pulmonary disease [Recovered/Resolved]
  - Intermittent claudication [Recovered/Resolved]
  - Thymoma [Recovered/Resolved]
  - Eyelid ptosis [Recovered/Resolved]
  - Pneumonia [Recovered/Resolved]
  - General physical health deterioration [Recovered/Resolved]
  - Dyspnoea [Recovered/Resolved]
  - Thymus enlargement [Recovered/Resolved]
  - PCO2 increased [Recovered/Resolved]
  - Diplopia [Recovered/Resolved]
  - Dysarthria [Recovered/Resolved]
  - Muscular weakness [Recovered/Resolved]
  - Pneumothorax [Recovered/Resolved]
